FAERS Safety Report 7596845-X (Version None)
Quarter: 2011Q3

REPORT INFORMATION
  Report Type: 
  Country: None (occurrence: None)
  Receive Date: 20110708
  Receipt Date: 20110701
  Transmission Date: 20111222
  Serious: Yes (Death, Life-Threatening, Hospitalization)
  Sender: FDA-Public Use
  Company Number: US-TEVA-288601USA

PATIENT
  Sex: Male
  Weight: 85.806 kg

DRUGS (17)
  1. CISPLATIN [Suspect]
     Indication: HEAD AND NECK CANCER
     Route: 042
     Dates: start: 20110317, end: 20110317
  2. VALSARTAN [Concomitant]
     Dosage: 320/25
     Dates: start: 19950101
  3. OMEPRAZOLE [Concomitant]
     Dosage: 10 MILLIGRAM;
     Dates: start: 20030101
  4. ROSUVASTATIN [Concomitant]
     Dosage: 50 MILLIGRAM;
     Route: 048
  5. B-KOMPLEX [Concomitant]
     Dosage: 100 MILLIGRAM;
  6. MAGNESIUM HYDROXIDE [Concomitant]
  7. FLUOROURACIL [Suspect]
     Indication: HEAD AND NECK CANCER
     Route: 042
     Dates: start: 20110317, end: 20110321
  8. AMLODIPINE [Concomitant]
     Dosage: 10 MILLIGRAM;
     Dates: start: 19950101
  9. CALCIUM ACETATE [Concomitant]
     Route: 048
  10. BISACODYL [Concomitant]
  11. METOPROLOL TARTRATE [Concomitant]
     Dosage: 50 MILLIGRAM;
     Dates: start: 19950101
  12. ASPIRIN [Concomitant]
     Dosage: 81 MILLIGRAM;
  13. CHLORPROMAZINE [Concomitant]
     Dosage: 150 MILLIGRAM;
  14. BLINDED THERAPY [Suspect]
     Indication: HEAD AND NECK CANCER
     Route: 042
     Dates: start: 20110317, end: 20110317
  15. PRAVASTATIN [Concomitant]
     Dosage: 20 MILLIGRAM;
     Dates: start: 19950101
  16. ACETAMINOPHEN [Concomitant]
  17. ALBUTEROL [Concomitant]

REACTIONS (4)
  - CARDIAC ARREST [None]
  - SEPSIS [None]
  - RENAL FAILURE ACUTE [None]
  - TUMOUR LYSIS SYNDROME [None]
